FAERS Safety Report 18388777 (Version 1)
Quarter: 2020Q4

REPORT INFORMATION
  Report Type: Spontaneous
  Country: JP (occurrence: JP)
  Receive Date: 20201015
  Receipt Date: 20201015
  Transmission Date: 20210114
  Serious: Yes (Other)
  Sender: FDA-Public Use
  Company Number: JP-HQ SPECIALTY-JP-2020INT000122

PATIENT
  Age: 36 Year
  Sex: Female

DRUGS (2)
  1. MAGNESIUM SULFATE IN DEXTROSE [Suspect]
     Active Substance: MAGNESIUM SULFATE
     Indication: TOCOLYSIS
     Dosage: 4 G LOADING DOSE
     Route: 042
  2. MAGNESIUM SULFATE IN DEXTROSE [Suspect]
     Active Substance: MAGNESIUM SULFATE
     Dosage: 1 G/HR FOLLOWING A 4 G LOADING DOSE
     Route: 042

REACTIONS (1)
  - Osmotic demyelination syndrome [Recovered/Resolved]
